FAERS Safety Report 4521682-X (Version None)
Quarter: 2004Q4

REPORT INFORMATION
  Report Type: 
  Country: None (occurrence: None)
  Receive Date: 20041206
  Receipt Date: 20041119
  Transmission Date: 20050328
  Serious: Yes (Other)
  Sender: FDA-Public Use
  Company Number: 2004-BP-12162RO

PATIENT
  Age: 54 Year
  Sex: Female

DRUGS (3)
  1. ALBUTEROL [Suspect]
     Indication: STATUS ASTHMATICUS
     Dosage: 1.5 MG OVER 9 HOURS, IV
     Route: 042
  2. AMINOPHYLLINE ORAL SOLUTION USP, 105MG/5ML (AMINOPHYLLINE) [Suspect]
     Indication: STATUS ASTHMATICUS
     Dosage: 1.7 MG OVER 9 HOURS, IV
     Route: 042
  3. HYDROCORTISONE [Suspect]
     Indication: STATUS ASTHMATICUS
     Dosage: 400 MG OVER 9 HOURS

REACTIONS (1)
  - ACUTE MYOCARDIAL INFARCTION [None]
